FAERS Safety Report 9760107 (Version 2)
Quarter: 2013Q4

REPORT INFORMATION
  Report Type: Report from Study
  Country: DE (occurrence: DE)
  Receive Date: 20131216
  Receipt Date: 20131218
  Transmission Date: 20140711
  Serious: Yes (Hospitalization)
  Sender: FDA-Public Use
  Company Number: DE-ROCHE-1315860

PATIENT
  Age: 48 Year
  Sex: Female
  Weight: 69.8 kg

DRUGS (10)
  1. RITUXIMAB [Suspect]
     Indication: MALIGNANT LYMPHOID NEOPLASM
     Dosage: DATE OF LAST DOSE PRIOR TO SAE: 03/DEC/2013
     Route: 042
     Dates: start: 20131109
  2. ADRIAMYCIN [Suspect]
     Indication: MALIGNANT LYMPHOID NEOPLASM
     Dosage: DATE OF LAST DATE PRIOR TO SAE: 26/NOV/2013
     Route: 042
     Dates: start: 20131110
  3. CYCLOPHOSPHAMIDE [Suspect]
     Indication: MALIGNANT LYMPHOID NEOPLASM
     Dosage: DATE OF LAST DOSE PRIOR TO SAE: 26/NOV/2013
     Route: 042
     Dates: start: 20131109
  4. VINCRISTINE [Suspect]
     Indication: MALIGNANT LYMPHOID NEOPLASM
     Dosage: DATE OF LAST DOSE PRIOR TO SAE: 26/NOV/2013
     Route: 042
     Dates: start: 20131109
  5. ETOPOSIDE [Suspect]
     Indication: MALIGNANT LYMPHOID NEOPLASM
     Dosage: DATE OF LAST DOSE PRIOR TO SAE: 28/NOV/2013
     Route: 042
     Dates: start: 20131109
  6. PREDNISOLONE [Suspect]
     Indication: MALIGNANT LYMPHOID NEOPLASM
     Dosage: DATE OF LAST DOSE PRIOR TO SAE: 29/NOV/2013
     Route: 048
     Dates: start: 20131109
  7. COTRIM FORTE [Concomitant]
     Route: 065
     Dates: start: 20131108
  8. L-THYROX [Concomitant]
  9. RANITIC [Concomitant]
  10. VALTREX [Concomitant]
     Indication: PROPHYLAXIS

REACTIONS (1)
  - Blood disorder [Not Recovered/Not Resolved]
